FAERS Safety Report 18329312 (Version 1)
Quarter: 2020Q3

REPORT INFORMATION
  Report Type: Spontaneous
  Country: US (occurrence: US)
  Receive Date: 20200929
  Receipt Date: 20200929
  Transmission Date: 20201103
  Serious: Yes (Disabling)
  Sender: FDA-Public Use
  Company Number: None

PATIENT
  Age: 54 Year
  Sex: Female
  Weight: 60.33 kg

DRUGS (5)
  1. FEMARA [Suspect]
     Active Substance: LETROZOLE
     Dates: start: 20160601
  2. BUPROPRION [Concomitant]
     Active Substance: BUPROPION
  3. MONA LISA [Suspect]
     Active Substance: COPPER
  4. MIRAPEX [Concomitant]
     Active Substance: PRAMIPEXOLE DIHYDROCHLORIDE
  5. VITAMIN D [Concomitant]
     Active Substance: VITAMIN D NOS

REACTIONS (5)
  - Complication associated with device [None]
  - Atrophic vulvovaginitis [None]
  - Vulvovaginal dryness [None]
  - Vulvovaginal pain [None]
  - Scar [None]

NARRATIVE: CASE EVENT DATE: 20160601
